FAERS Safety Report 23170264 (Version 1)
Quarter: 2023Q4

REPORT INFORMATION
  Report Type: Spontaneous
  Country: US (occurrence: US)
  Receive Date: 20231110
  Receipt Date: 20231110
  Transmission Date: 20240110
  Serious: No
  Sender: FDA-Public Use
  Company Number: US-MICRO LABS LIMITED-ML2023-05536

PATIENT
  Age: 77 Year
  Sex: Female

DRUGS (3)
  1. DORZOLAMIDE\TIMOLOL [Suspect]
     Active Substance: DORZOLAMIDE\TIMOLOL
     Indication: Glaucoma
     Route: 047
     Dates: start: 20230111
  2. DORZOLAMIDE\TIMOLOL [Suspect]
     Active Substance: DORZOLAMIDE\TIMOLOL
     Dosage: ONE DROP IN THE LEFT EYE; STRENGTH: 2/0.5 %
     Route: 047
     Dates: start: 20230420
  3. DORZOLAMIDE\TIMOLOL [Suspect]
     Active Substance: DORZOLAMIDE\TIMOLOL
     Indication: Glaucoma
     Route: 047

REACTIONS (3)
  - Dry eye [Unknown]
  - Product container issue [Unknown]
  - Product storage error [Unknown]
